FAERS Safety Report 17252426 (Version 1)
Quarter: 2020Q1

REPORT INFORMATION
  Report Type: Spontaneous
  Country: US (occurrence: US)
  Receive Date: 20200108
  Receipt Date: 20200108
  Transmission Date: 20200409
  Serious: No
  Sender: FDA-Public Use
  Company Number: None

PATIENT
  Age: 53 Year
  Sex: Female
  Weight: 87.75 kg

DRUGS (1)
  1. CABERGOLINE TABS 0.5MG [Suspect]
     Active Substance: CABERGOLINE
     Indication: PITUITARY TUMOUR
     Dosage: ?          QUANTITY:1 TABLET(S);OTHER FREQUENCY:2 X WK (MON + FRI);?
     Route: 048

REACTIONS (3)
  - Product storage error [None]
  - Product tampering [None]
  - Product packaging issue [None]

NARRATIVE: CASE EVENT DATE: 20191218
